FAERS Safety Report 6036277-9 (Version None)
Quarter: 2009Q1

REPORT INFORMATION
  Report Type: 
  Country: None (occurrence: None)
  Receive Date: 20090113
  Receipt Date: 20090109
  Transmission Date: 20090719
  Serious: Yes (Hospitalization)
  Sender: FDA-Public Use
  Company Number: PHHY2008AT32288

PATIENT
  Age: 18 Year
  Sex: Male

DRUGS (8)
  1. CERTICAN [Interacting]
     Indication: RENAL TRANSPLANT
     Dosage: 0.125 MG, MORNING / EVENING
     Dates: end: 20081219
  2. SANDIMMUNE [Suspect]
     Indication: RENAL TRANSPLANT
     Dosage: 40 MG MORNING/ EVENING
     Route: 048
  3. ACEMIN [Concomitant]
     Dosage: 5 MG PER DAY
     Route: 048
  4. EUTHYROX [Concomitant]
     Dosage: 75 UG PER DAY
  5. SELOKEN - SLOW RELEASE [Concomitant]
     Dosage: 95 MG PER DAY
  6. UROSIN [Concomitant]
     Dosage: 100 MG PER DAY
     Route: 048
  7. ZANTAC [Concomitant]
     Dosage: 300 MG PER DAY
     Route: 048
  8. AMLODIPINE MALEATE [Concomitant]

REACTIONS (4)
  - BLOOD LACTATE DEHYDROGENASE INCREASED [None]
  - DRUG LEVEL INCREASED [None]
  - HAEMOGLOBIN DECREASED [None]
  - HAEMOLYSIS [None]
